FAERS Safety Report 7027978-4 (Version None)
Quarter: 2010Q4

REPORT INFORMATION
  Report Type: 
  Country: None (occurrence: None)
  Receive Date: 20101001
  Receipt Date: 20101001
  Transmission Date: 20110411
  Serious: Yes (Hospitalization)
  Sender: FDA-Public Use
  Company Number: None

PATIENT
  Sex: Female
  Weight: 117 kg

DRUGS (5)
  1. CARBOPLATIN [Suspect]
     Dosage: 554 MG
  2. CISPLATIN [Suspect]
     Dosage: 0 MG
  3. TAXOL [Suspect]
     Dosage: 350 MG
  4. NEULASTA [Suspect]
     Dosage: 6 MG
  5. LISINOPRIL [Concomitant]

REACTIONS (17)
  - BLOOD CREATININE INCREASED [None]
  - CELLULITIS [None]
  - DEHYDRATION [None]
  - DIZZINESS POSTURAL [None]
  - GASTROENTERITIS VIRAL [None]
  - HAEMOGLOBIN DECREASED [None]
  - HEPATITIS [None]
  - HYPERHIDROSIS [None]
  - HYPOPHAGIA [None]
  - HYPOTENSION [None]
  - MUSCULOSKELETAL DISCOMFORT [None]
  - PALPITATIONS [None]
  - PSOAS ABSCESS [None]
  - PULMONARY EMBOLISM [None]
  - TACHYCARDIA [None]
  - TRANSAMINASES INCREASED [None]
  - URINARY TRACT INFECTION [None]
